FAERS Safety Report 7498803-2 (Version None)
Quarter: 2011Q2

REPORT INFORMATION
  Report Type: 
  Country: None (occurrence: None)
  Receive Date: 20110524
  Receipt Date: 20110518
  Transmission Date: 20111010
  Serious: No
  Sender: FDA-Public Use
  Company Number: US-PFIZER INC-2011108005

PATIENT
  Sex: Male

DRUGS (1)
  1. CHANTIX [Suspect]
     Dosage: UNK

REACTIONS (5)
  - HYPOAESTHESIA FACIAL [None]
  - ABDOMINAL DISCOMFORT [None]
  - VOMITING [None]
  - ABNORMAL DREAMS [None]
  - HYPOAESTHESIA ORAL [None]
